FAERS Safety Report 6695822-0 (Version None)
Quarter: 2010Q2

REPORT INFORMATION
  Report Type: 
  Country: None (occurrence: None)
  Receive Date: 20100421
  Receipt Date: 20100406
  Transmission Date: 20101027
  Serious: Yes (Life-Threatening, Hospitalization)
  Sender: FDA-Public Use
  Company Number: IPC201002-000013

PATIENT
  Age: 71 Year
  Sex: Female
  Weight: 75 kg

DRUGS (3)
  1. METFORMIN HYDROCHLORIDE 500 MG TABLETS (METFORMIN HYDROCHLORIDE) (METF [Suspect]
     Indication: DRUG USE FOR UNKNOWN INDICATION
     Dosage: 500 MG, 1 IN 1 D,
  2. ENALAPRIL MALEATE [Suspect]
     Indication: HYPERTENSION
     Dosage: 5 MG, 1 IN 1 D
  3. GLIBENCLAMIDE [Suspect]
     Indication: TYPE 2 DIABETES MELLITUS
     Dosage: 15 MG, 1 IN 1 D

REACTIONS (10)
  - CULTURE URINE POSITIVE [None]
  - DEHYDRATION [None]
  - ELECTROCARDIOGRAM QRS COMPLEX PROLONGED [None]
  - ESCHERICHIA URINARY TRACT INFECTION [None]
  - GLYCOSURIA [None]
  - HYPERGLYCAEMIA [None]
  - HYPERKALAEMIA [None]
  - LACTIC ACIDOSIS [None]
  - NODAL ARRHYTHMIA [None]
  - URINARY TRACT INFECTION [None]
